FAERS Safety Report 7602900-8 (Version None)
Quarter: 2011Q3

REPORT INFORMATION
  Report Type: 
  Country: None (occurrence: None)
  Receive Date: 20110711
  Receipt Date: 20110711
  Transmission Date: 20111222
  Serious: Yes (Hospitalization)
  Sender: FDA-Public Use
  Company Number: None

PATIENT
  Age: 74 Year
  Sex: 0
  Weight: 113 kg

DRUGS (14)
  1. LANTUS [Concomitant]
  2. GLUCOVANCE [Concomitant]
  3. COLACE [Concomitant]
  4. OXYCODONE/ACETAMINOPHEN [Concomitant]
  5. PLAVIX [Concomitant]
  6. CLONIDINE [Concomitant]
  7. ASPIRIN [Concomitant]
  8. LISINOPRIL [Suspect]
     Indication: HYPERTENSION
     Dosage: 10MG BID PO CHRONIC
     Route: 048
  9. CADUET [Concomitant]
  10. SERTRALINE HYDROCHLORIDE [Concomitant]
  11. SENOSOL [Concomitant]
  12. NEURONTIN [Concomitant]
  13. POTASSIUM GLUCONATE TAB [Concomitant]
  14. LASIX [Concomitant]

REACTIONS (1)
  - LIP SWELLING [None]
